FAERS Safety Report 4719538-2 (Version None)
Quarter: 2005Q3

REPORT INFORMATION
  Report Type: 
  Country: None (occurrence: None)
  Receive Date: 20050719
  Receipt Date: 20050719
  Transmission Date: 20060218
  Serious: Yes (Hospitalization)
  Sender: FDA-Public Use
  Company Number: None

PATIENT
  Sex: Male

DRUGS (15)
  1. GATIFLOXACIN [Suspect]
     Dosage: 400 MG DAILY ORAL
     Route: 048
     Dates: start: 20050327, end: 20050402
  2. FUROSEMIDE [Concomitant]
  3. LEFLUMMONIDE [Concomitant]
  4. CARVEDILOL [Concomitant]
  5. WARFARIN SODIUM [Concomitant]
  6. LISINOPRIL [Concomitant]
  7. VIAGRA [Concomitant]
  8. SPIRONOLACTONE [Concomitant]
  9. PREDNISONE [Concomitant]
  10. HYDROXYCHLOROQUINE SULFATE [Concomitant]
  11. RANITIDINE [Concomitant]
  12. GLYBURIDE [Concomitant]
  13. FOLIC ACID [Concomitant]
  14. SIMVASTATIN [Concomitant]
  15. AMITRIPTYLINE HCL [Concomitant]

REACTIONS (4)
  - BLOOD GLUCOSE INCREASED [None]
  - DIARRHOEA [None]
  - DIZZINESS [None]
  - DRUG DISPENSING ERROR [None]
